FAERS Safety Report 7076568-6 (Version None)
Quarter: 2010Q4

REPORT INFORMATION
  Report Type: 
  Country: None (occurrence: None)
  Receive Date: 20101101
  Receipt Date: 20101019
  Transmission Date: 20110411
  Serious: Yes (Hospitalization)
  Sender: FDA-Public Use
  Company Number: JP-PFIZER INC-2010126796

PATIENT
  Age: 69 Year
  Sex: Male

DRUGS (5)
  1. CELECOX [Suspect]
     Dosage: 200 MG, UNKNOWN/D
     Route: 048
     Dates: start: 20081202, end: 20100910
  2. DUTASTERIDE [Suspect]
     Route: 048
  3. URIEF [Suspect]
     Dosage: UNK
     Route: 048
  4. THYRADIN [Suspect]
     Route: 048
  5. WARFARIN [Suspect]
     Route: 065

REACTIONS (1)
  - HYPOALBUMINAEMIA [None]
